FAERS Safety Report 6796224-9 (Version None)
Quarter: 2010Q2

REPORT INFORMATION
  Report Type: 
  Country: None (occurrence: None)
  Receive Date: 20100624
  Receipt Date: 20100624
  Transmission Date: 20101027
  Serious: No
  Sender: FDA-Public Use
  Company Number: None

PATIENT
  Age: 74 Year
  Sex: Female
  Weight: 78.0187 kg

DRUGS (1)
  1. HYDROCHLOROTHIAZIDE [Suspect]
     Indication: BLOOD PRESSURE INCREASED
     Dosage: 25MG 1 TAB DAILY PO
     Route: 048

REACTIONS (2)
  - ACTIVITIES OF DAILY LIVING IMPAIRED [None]
  - ECZEMA [None]
